FAERS Safety Report 4393288-7 (Version None)
Quarter: 2004Q3

REPORT INFORMATION
  Report Type: 
  Country: None (occurrence: None)
  Receive Date: 20040708
  Receipt Date: 20040705
  Transmission Date: 20050211
  Serious: Yes (Hospitalization)
  Sender: FDA-Public Use
  Company Number: CH-MERCK-0407CHE00013

PATIENT

DRUGS (1)
  1. CANCIDAS [Suspect]
     Indication: FUNGAL INFECTION
     Route: 042
     Dates: start: 20040101, end: 20040101

REACTIONS (3)
  - DERMATITIS [None]
  - DERMATITIS EXFOLIATIVE [None]
  - ERYTHEMA [None]
